FAERS Safety Report 5195310-7 (Version None)
Quarter: 2006Q4

REPORT INFORMATION
  Report Type: 
  Country: None (occurrence: None)
  Receive Date: 20061229
  Receipt Date: 20061215
  Transmission Date: 20070319
  Serious: Yes (Disabling, Other)
  Sender: FDA-Public Use
  Company Number: BR-PFIZER INC-2006154293

PATIENT
  Sex: Female

DRUGS (2)
  1. FRONTAL [Suspect]
     Indication: INSOMNIA
     Route: 048
  2. FLUOXETINE [Concomitant]
     Route: 048
     Dates: start: 20040101

REACTIONS (6)
  - BLOOD PRESSURE INCREASED [None]
  - FACE OEDEMA [None]
  - INSOMNIA [None]
  - NERVOUSNESS [None]
  - PYREXIA [None]
  - TOOTH EXTRACTION [None]
